FAERS Safety Report 8076794-3 (Version None)
Quarter: 2012Q1

REPORT INFORMATION
  Report Type: 
  Country: None (occurrence: None)
  Receive Date: 20120127
  Receipt Date: 20120124
  Transmission Date: 20120608
  Serious: Yes (Hospitalization)
  Sender: FDA-Public Use
  Company Number: PHHO2012DE000497

PATIENT
  Sex: Female
  Weight: 68 kg

DRUGS (4)
  1. EPIRUBICIN HYDROCHLORIDE [Suspect]
     Indication: BREAST CANCER
     Dosage: 175 MG, UNK
     Route: 042
     Dates: start: 20101220
  2. FLUOROURACIL [Suspect]
     Indication: BREAST CANCER
     Dosage: 860 MG, UNK
     Route: 042
     Dates: start: 20101220
  3. CYCLOPHOSPHAMIDE [Suspect]
     Indication: BREAST CANCER
     Dosage: 860 MG, UNK
     Route: 042
     Dates: start: 20101220
  4. NO TREATMENT RECEIVED [Suspect]

REACTIONS (2)
  - PYREXIA [None]
  - C-REACTIVE PROTEIN INCREASED [None]
